FAERS Safety Report 6489792-8 (Version None)
Quarter: 2009Q4

REPORT INFORMATION
  Report Type: 
  Country: None (occurrence: None)
  Receive Date: 20091211
  Receipt Date: 20091208
  Transmission Date: 20100525
  Serious: Yes (Hospitalization, Other)
  Sender: FDA-Public Use
  Company Number: US-ASTRAZENECA-2007UW15766

PATIENT
  Age: 18705 Day
  Sex: Male
  Weight: 91.5 kg

DRUGS (30)
  1. SEROQUEL [Suspect]
     Indication: SLEEP DISORDER
     Route: 048
     Dates: start: 20000306
  2. SEROQUEL [Suspect]
     Indication: PSYCHOTIC DISORDER
     Route: 048
     Dates: start: 20000306
  3. SEROQUEL [Suspect]
     Route: 048
     Dates: start: 20010101, end: 20060101
  4. SEROQUEL [Suspect]
     Route: 048
     Dates: start: 20010101, end: 20060101
  5. SEROQUEL [Suspect]
     Dosage: 200 - 800 MG DAILY
     Route: 048
     Dates: start: 20010202
  6. SEROQUEL [Suspect]
     Dosage: 200 - 800 MG DAILY
     Route: 048
     Dates: start: 20010202
  7. ZYPREXA [Concomitant]
     Dosage: 10 TO 20 MG
     Dates: start: 20010202, end: 20010301
  8. HALDOL [Concomitant]
     Dates: start: 20050101
  9. EFFEXOR XR [Concomitant]
     Indication: DEPRESSION
     Dosage: 300 - 375 MG DAILY
     Route: 048
     Dates: start: 20010202
  10. REMERON [Concomitant]
     Indication: DEPRESSION
     Dosage: 30 -60 MG DAILY
     Route: 048
     Dates: start: 20010202
  11. LIPITOR [Concomitant]
     Route: 048
     Dates: start: 20071011
  12. MECLIZINE [Concomitant]
     Indication: VERTIGO
     Dosage: 25 MG TWO TIMES A DAY, 75 - 100 MG DAILY AS REQUIRED
     Route: 048
     Dates: start: 20030716
  13. MECLIZINE [Concomitant]
     Indication: DIZZINESS
     Dosage: 25 MG TWO TIMES A DAY, 75 - 100 MG DAILY AS REQUIRED
     Route: 048
     Dates: start: 20030716
  14. MOBIC [Concomitant]
     Route: 048
     Dates: start: 20070322
  15. PERCOCET [Concomitant]
     Indication: PAIN
     Dosage: 5/325 MG - 7.5/325 MG, EVERY 4-6 HOURS, AS REQUIRED
     Route: 048
     Dates: start: 20041215
  16. PREVACID [Concomitant]
     Indication: DYSPHAGIA
     Dosage: 10 MG TO 60 MG DAILY
     Route: 048
     Dates: start: 20010202
  17. NABUMETONE [Concomitant]
     Dates: start: 19971211
  18. HALOPERIDOL [Concomitant]
     Dosage: 10 MG TO 20 MG DAILY
     Route: 048
     Dates: start: 20071216
  19. LORAZEPAM [Concomitant]
     Dates: start: 19971022
  20. ACTOS [Concomitant]
     Dosage: 15 - 45 MG DAILY
     Route: 048
     Dates: start: 20030716
  21. FOSINOP/HCTZ [Concomitant]
     Dosage: 10/12.5 MG DAILY
     Route: 048
     Dates: start: 19970917
  22. PROTONIX [Concomitant]
     Route: 048
     Dates: start: 20071011
  23. CYCLOBENZAPRINE [Concomitant]
     Dates: start: 19970917
  24. COGENTIN [Concomitant]
     Route: 048
     Dates: start: 20071216
  25. ASPIRIN [Concomitant]
     Route: 048
     Dates: start: 19960317
  26. ALLEGRA [Concomitant]
     Dates: start: 20061220
  27. ACCUPRIL [Concomitant]
     Dates: start: 20030716
  28. DIOVAN [Concomitant]
     Route: 048
     Dates: start: 20030716
  29. KLONOPIN [Concomitant]
     Dosage: 1 MG TO 3 MG DAILY
     Route: 048
     Dates: start: 20071011
  30. NITROGLYCERIN [Concomitant]
     Dosage: 0.2 MG PER HOUR, 12 ON AND 12 OFF
     Dates: start: 19940405

REACTIONS (9)
  - BACK PAIN [None]
  - BLOOD CHOLESTEROL INCREASED [None]
  - DIABETES MELLITUS [None]
  - HYPERTENSION [None]
  - HYPOGLYCAEMIA [None]
  - MENTAL DISORDER [None]
  - NEUROPATHY PERIPHERAL [None]
  - TYPE 1 DIABETES MELLITUS [None]
  - TYPE 2 DIABETES MELLITUS [None]
